FAERS Safety Report 5030266-9 (Version None)
Quarter: 2006Q2

REPORT INFORMATION
  Report Type: 
  Country: None (occurrence: None)
  Receive Date: 20060620
  Receipt Date: 20051227
  Transmission Date: 20061013
  Serious: Yes (Other)
  Sender: FDA-Public Use
  Company Number: US-ROCHE-430197

PATIENT
  Age: 13 Year
  Sex: Male
  Weight: 72.6 kg

DRUGS (1)
  1. ACCUTANE [Suspect]
     Indication: ACNE
     Route: 048
     Dates: start: 19940904, end: 19941010

REACTIONS (16)
  - AFFECTIVE DISORDER [None]
  - ANKLE FRACTURE [None]
  - ANXIETY [None]
  - CLAVICLE FRACTURE [None]
  - COLITIS [None]
  - CROHN'S DISEASE [None]
  - DEPRESSION [None]
  - EAR PAIN [None]
  - FALL [None]
  - ILEITIS [None]
  - INFLAMMATORY BOWEL DISEASE [None]
  - INTESTINAL HAEMORRHAGE [None]
  - NEPHROLITHIASIS [None]
  - SELF ESTEEM DECREASED [None]
  - SPORTS INJURY [None]
  - SUICIDAL IDEATION [None]
